FAERS Safety Report 9402830 (Version 1)
Quarter: 2013Q3

REPORT INFORMATION
  Report Type: Spontaneous
  Country: US (occurrence: None)
  Receive Date: 20130715
  Receipt Date: 20130715
  Transmission Date: 20140515
  Serious: Yes (Hospitalization, Other)
  Sender: FDA-Public Use
  Company Number: None

PATIENT
  Age: 53 Year
  Sex: Female
  Weight: 68.04 kg

DRUGS (2)
  1. ARMOUR THYROID [Suspect]
     Indication: HYPOTHYROIDISM
     Dosage: 90  5 DAYS/WEEK + 120  2DAYS/WK
     Route: 048
     Dates: start: 20130306, end: 20130622
  2. PROGESTERONE [Suspect]
     Dosage: 150MG  EACH EVENING
     Route: 048
     Dates: start: 20130130, end: 20130630

REACTIONS (9)
  - Muscular weakness [None]
  - Gait disturbance [None]
  - Muscular weakness [None]
  - Muscle twitching [None]
  - Balance disorder [None]
  - Coordination abnormal [None]
  - Gait disturbance [None]
  - Blood thyroid stimulating hormone decreased [None]
  - Myopathy [None]
